FAERS Safety Report 8972807 (Version 1)
Quarter: 2012Q4

REPORT INFORMATION
  Report Type: 
  Country: US (occurrence: US)
  Receive Date: 20121218
  Receipt Date: 20121218
  Transmission Date: 20130627
  Serious: Yes (Hospitalization, Other)
  Sender: FDA-Public Use
  Company Number: US-ROCHE-1156710

PATIENT
  Sex: Male

DRUGS (3)
  1. PEGASYS [Suspect]
     Indication: CHRONIC HEPATITIS C
     Route: 058
     Dates: start: 20120905
  2. RIBAVIRIN [Suspect]
     Indication: CHRONIC HEPATITIS C
     Dosage: divided dose 600/600
     Route: 065
     Dates: start: 20120905
  3. TELAPREVIR [Suspect]
     Indication: CHRONIC HEPATITIS C
     Route: 065

REACTIONS (6)
  - Oedema peripheral [Unknown]
  - Anorectal varices haemorrhage [Unknown]
  - Ascites [Unknown]
  - Pneumothorax [Unknown]
  - Oedema peripheral [Unknown]
  - Renal impairment [Unknown]
